FAERS Safety Report 7939103-3 (Version None)
Quarter: 2011Q4

REPORT INFORMATION
  Report Type: 
  Country: None (occurrence: None)
  Receive Date: 20111124
  Receipt Date: 20111115
  Transmission Date: 20120403
  Serious: Yes (Life-Threatening, Other)
  Sender: FDA-Public Use
  Company Number: DE-ROCHE-1006203

PATIENT
  Sex: Female
  Weight: 83 kg

DRUGS (9)
  1. BISOPROLOL PLUS [Concomitant]
     Indication: HYPERTENSION
     Dosage: DOSE: 10/25
     Route: 048
  2. PREDNISOLONE [Concomitant]
     Indication: RHEUMATOID ARTHRITIS
     Route: 048
  3. SIMVASTATIN [Concomitant]
     Indication: HYPERCHOLESTEROLAEMIA
     Route: 048
  4. HYDROCHLOROTHIAZIDE [Concomitant]
     Route: 048
  5. ACTEMRA [Suspect]
     Indication: RHEUMATOID ARTHRITIS
     Route: 042
     Dates: start: 20091218
  6. MIRTAZAPINE [Concomitant]
     Indication: DEPRESSION
     Route: 048
  7. ALENDRONATE SODIUM [Concomitant]
     Indication: OSTEOPOROSIS
     Route: 048
  8. LOSARTAN POTASSIUM [Concomitant]
     Indication: HYPERTENSION
     Dosage: DOSE: 100/25
     Route: 048
  9. PANTOPRAZOLE [Concomitant]
     Indication: GASTRITIS
     Route: 048

REACTIONS (1)
  - MYOCARDIAL INFARCTION [None]
